FAERS Safety Report 14593028 (Version 1)
Quarter: 2018Q1

REPORT INFORMATION
  Report Type: Spontaneous
  Country: US (occurrence: US)
  Receive Date: 20180302
  Receipt Date: 20180302
  Transmission Date: 20180509
  Serious: No
  Sender: FDA-Public Use
  Company Number: US-009507513-1802USA010663

PATIENT
  Sex: Male

DRUGS (2)
  1. PROPECIA [Suspect]
     Active Substance: FINASTERIDE
     Indication: PROSTATIC DISORDER
     Dosage: 5 MG, QD
  2. PROPECIA [Suspect]
     Active Substance: FINASTERIDE
     Dosage: 5 MG, QD

REACTIONS (3)
  - Blood testosterone decreased [Unknown]
  - Asthenia [Unknown]
  - Dysuria [Recovering/Resolving]
